FAERS Safety Report 17941256 (Version 1)
Quarter: 2020Q2

REPORT INFORMATION
  Report Type: Spontaneous
  Country: US (occurrence: US)
  Receive Date: 20200624
  Receipt Date: 20200624
  Transmission Date: 20200714
  Serious: Yes (Death)
  Sender: FDA-Public Use
  Company Number: None

PATIENT
  Age: 61 Year
  Sex: Male
  Weight: 106.4 kg

DRUGS (19)
  1. ASPIRIN EC 81MG DAILY [Concomitant]
     Dates: start: 20200616, end: 20200621
  2. METOCLOPRAMIDE 10MG + DIPHENHYDRAMINE 25MG IV Q6H [Concomitant]
     Dates: start: 20200616, end: 20200617
  3. METOPROLOL 5MG IV Q4H PRN SBP } 160 OR HR}100 [Concomitant]
     Dates: start: 20200618, end: 20200621
  4. ACETAMINOPHEN 650MG PO Q4H PRN PAIN 1-3, FEVER [Concomitant]
     Dates: start: 20200616, end: 20200621
  5. AZITHROMYCIN 500MG IV Q24H [Concomitant]
     Dates: start: 20200616, end: 20200621
  6. ENOXAPARIN 40MG SUBQ DAILY [Concomitant]
     Dates: start: 20200616, end: 20200621
  7. ATORVASTATIN 20MG QHS [Concomitant]
     Dates: start: 20200616, end: 20200621
  8. CEFTRIAXONE 1G IV Q24H [Concomitant]
     Dates: start: 20200615, end: 20200615
  9. EPOPROSTENOL CONTINUOUS NEB [Concomitant]
     Dates: start: 20200620, end: 20200621
  10. INSULIN LISPRO SLIDING SCALE 4X/D [Concomitant]
     Dates: start: 20200616, end: 20200621
  11. VITAMIN C 1G Q12H, ZINC 2250MG PO Q12H [Concomitant]
     Dates: start: 20200616, end: 20200621
  12. DEXAMETHASONE 6MG PO DAILY [Concomitant]
     Dates: start: 20200616, end: 20200621
  13. PRECEDEX INFUSION [Concomitant]
     Dates: start: 20200617, end: 20200621
  14. FAMOTIDINE 20MG IV Q12H [Concomitant]
     Dates: start: 20200616, end: 20200621
  15. LANTUS 25-30 UNITS QHS [Concomitant]
     Dates: start: 20200617, end: 20200621
  16. REMDESIVIR. [Suspect]
     Active Substance: REMDESIVIR
     Indication: COVID-19
     Dosage: ?          OTHER FREQUENCY:200MG D1, 100MG/D;?
     Route: 042
     Dates: start: 20200616, end: 20200620
  17. CEFEPIME 1G IV Q6H [Concomitant]
     Dates: start: 20200616, end: 20200616
  18. EPINEPHRINE INFUSION [Concomitant]
     Active Substance: EPINEPHRINE
     Dates: start: 20200620, end: 20200621
  19. TOCILIZUMAB 400MG IV ONCE [Concomitant]
     Dates: start: 20200619, end: 20200619

REACTIONS (3)
  - Oxygen saturation decreased [None]
  - Hypotension [None]
  - Pulse absent [None]

NARRATIVE: CASE EVENT DATE: 20200621
